FAERS Safety Report 14256993 (Version 2)
Quarter: 2018Q1

REPORT INFORMATION
  Report Type: Spontaneous
  Country: US (occurrence: US)
  Receive Date: 20171206
  Receipt Date: 20180109
  Transmission Date: 20180508
  Serious: Yes (Hospitalization)
  Sender: FDA-Public Use
  Company Number: US-ALLERGAN-1763815US

PATIENT
  Age: 6 Decade
  Sex: Male

DRUGS (2)
  1. DALVANCE [Suspect]
     Active Substance: DALBAVANCIN
     Indication: OSTEOMYELITIS
     Dosage: 1000 MG, SINGLE
     Route: 042
     Dates: start: 201711, end: 201711
  2. DALVANCE [Suspect]
     Active Substance: DALBAVANCIN
     Dosage: 500 MG, SINGLE
     Route: 042
     Dates: start: 201711, end: 201711

REACTIONS (2)
  - Arthritis bacterial [Unknown]
  - Off label use [Unknown]

NARRATIVE: CASE EVENT DATE: 201711
